FAERS Safety Report 14568243 (Version 1)
Quarter: 2018Q1

REPORT INFORMATION
  Report Type: Spontaneous
  Country: US (occurrence: US)
  Receive Date: 20180223
  Receipt Date: 20180223
  Transmission Date: 20180509
  Serious: No
  Sender: FDA-Public Use
  Company Number: US-IMPAX LABORATORIES, INC-2017-IPXL-01805

PATIENT
  Age: 41 Year
  Sex: Female

DRUGS (4)
  1. EMVERM [Suspect]
     Active Substance: MEBENDAZOLE
     Dosage: 100 MG, UNK
     Route: 048
     Dates: start: 20170328
  2. EMVERM [Suspect]
     Active Substance: MEBENDAZOLE
     Indication: ENTEROBIASIS
     Dosage: 100 MG, UNK
     Route: 048
     Dates: start: 20170315
  3. EMVERM [Suspect]
     Active Substance: MEBENDAZOLE
     Dosage: 100 MG, UNK
     Route: 048
     Dates: start: 20170506
  4. EMVERM [Suspect]
     Active Substance: MEBENDAZOLE
     Dosage: 100 MG, UNK
     Route: 048
     Dates: start: 20170519

REACTIONS (1)
  - Drug ineffective [Unknown]

NARRATIVE: CASE EVENT DATE: 201703
